FAERS Safety Report 10441203 (Version 1)
Quarter: 2014Q3

REPORT INFORMATION
  Report Type: Spontaneous
  Country: US (occurrence: None)
  Receive Date: 20140908
  Receipt Date: 20140908
  Transmission Date: 20150326
  Serious: Yes (Other)
  Sender: FDA-Public Use
  Company Number: None

PATIENT
  Age: 56 Year
  Sex: Male

DRUGS (1)
  1. SIMPONI [Suspect]
     Active Substance: GOLIMUMAB
     Indication: PSORIATIC ARTHROPATHY
     Dosage: 50 MG INJECTABLE ONCE MONTHLY SUBCUTANEOUS 057
     Route: 058

REACTIONS (3)
  - Musculoskeletal pain [None]
  - Psoriasis [None]
  - Condition aggravated [None]

NARRATIVE: CASE EVENT DATE: 20140827
